FAERS Safety Report 20345987 (Version 1)
Quarter: 2022Q1

REPORT INFORMATION
  Report Type: Spontaneous
  Country: CN (occurrence: CN)
  Receive Date: 20220118
  Receipt Date: 20220118
  Transmission Date: 20220423
  Serious: Yes (Other)
  Sender: FDA-Public Use
  Company Number: CN-PFIZER INC-202200020762

PATIENT
  Age: 27 Year
  Sex: Female
  Weight: 79 kg

DRUGS (5)
  1. HEMABATE [Suspect]
     Active Substance: CARBOPROST TROMETHAMINE
     Indication: Uterine contractions abnormal
     Dosage: 250 UG, 1X/DAY
     Dates: start: 20211216, end: 20211216
  2. TRANEXAMIC ACID [Suspect]
     Active Substance: TRANEXAMIC ACID
     Indication: Haemorrhage
     Dosage: 1 G, 1X/DAY
     Route: 041
     Dates: start: 20211216, end: 20211216
  3. ERGONOVINE MALEATE [Suspect]
     Active Substance: ERGONOVINE MALEATE
     Indication: Uterine contractions abnormal
     Dosage: 0.2 MG, 1X/DAY
     Route: 042
     Dates: start: 20211216, end: 20211216
  4. SODIUM CHLORIDE [Concomitant]
     Active Substance: SODIUM CHLORIDE
     Indication: Vehicle solution use
     Dosage: 10 ML, 1X/DAY
     Route: 042
     Dates: start: 20211216, end: 20211216
  5. SODIUM CHLORIDE [Concomitant]
     Active Substance: SODIUM CHLORIDE
     Dosage: 100 ML, 1X/DAY
     Route: 042
     Dates: start: 20211216, end: 20211216

REACTIONS (9)
  - Blood pressure increased [Recovered/Resolved]
  - Chest discomfort [Recovering/Resolving]
  - Headache [Recovering/Resolving]
  - Muscle twitching [Unknown]
  - Loss of consciousness [Unknown]
  - Seizure [Unknown]
  - Salivary hypersecretion [Unknown]
  - Eclampsia [Unknown]
  - Bronchospasm [Unknown]

NARRATIVE: CASE EVENT DATE: 20211216
